FAERS Safety Report 8205905-1 (Version None)
Quarter: 2012Q1

REPORT INFORMATION
  Report Type: 
  Country: None (occurrence: None)
  Receive Date: 20120313
  Receipt Date: 20120307
  Transmission Date: 20120608
  Serious: Yes (Hospitalization)
  Sender: FDA-Public Use
  Company Number: PHHY2012FR015991

PATIENT
  Sex: Female

DRUGS (6)
  1. SEROQUEL [Concomitant]
     Indication: PSYCHOTIC DISORDER
     Dosage: 2 DF, DAILY
     Dates: start: 20111227
  2. DEPAKENE [Concomitant]
     Dosage: 1 G, DAILY
     Route: 048
     Dates: start: 20120113
  3. TRILEPTAL [Suspect]
     Indication: EPILEPSY
     Route: 048
     Dates: start: 20111102, end: 20120109
  4. DEPAKENE [Concomitant]
     Indication: EPILEPSY
     Dosage: 250 MG, DAILY
     Route: 048
     Dates: start: 20120102
  5. DEPAKENE [Concomitant]
     Dosage: 500 MG, DAILY
     Route: 048
     Dates: start: 20120109
  6. HALDOL [Suspect]
     Indication: PSYCHOTIC DISORDER
     Route: 048
     Dates: start: 20111102, end: 20111201

REACTIONS (4)
  - DELUSIONAL DISORDER, UNSPECIFIED TYPE [None]
  - LEUKOPENIA [None]
  - DISSOCIATIVE DISORDER [None]
  - NEUTROPENIA [None]
